FAERS Safety Report 26113416 (Version 1)
Quarter: 2025Q4

REPORT INFORMATION
  Report Type: Spontaneous
  Country: US (occurrence: US)
  Receive Date: 20251202
  Receipt Date: 20251202
  Transmission Date: 20260118
  Serious: Yes (Other)
  Sender: BIOVITRUM
  Company Number: US-BIOVITRUM-2025-US-016721

PATIENT
  Age: 63 Year
  Sex: Female

DRUGS (1)
  1. PACRITINIB [Suspect]
     Active Substance: PACRITINIB
     Indication: Primary myelofibrosis
     Dosage: TWICE DAILY (BID)

REACTIONS (1)
  - Gastrointestinal toxicity [Unknown]
